FAERS Safety Report 6125357-5 (Version None)
Quarter: 2009Q1

REPORT INFORMATION
  Report Type: 
  Country: None (occurrence: None)
  Receive Date: 20090319
  Receipt Date: 20090319
  Transmission Date: 20090719
  Serious: Yes (Other)
  Sender: FDA-Public Use
  Company Number: None

PATIENT
  Sex: Male
  Weight: 76.87 kg

DRUGS (1)
  1. MULTIHANCE [Suspect]
     Dates: start: 20090211, end: 20090211

REACTIONS (4)
  - BLOOD PRESSURE IMMEASURABLE [None]
  - COLD SWEAT [None]
  - HYPERHIDROSIS [None]
  - SYNCOPE [None]
